FAERS Safety Report 24920940 (Version 1)
Quarter: 2025Q1

REPORT INFORMATION
  Report Type: Spontaneous
  Country: TR (occurrence: TR)
  Receive Date: 20250204
  Receipt Date: 20250204
  Transmission Date: 20250409
  Serious: Yes (Other)
  Sender: ALEXION PHARMACEUTICALS
  Company Number: TR-ASTRAZENECA-202501TUR027460TR

PATIENT
  Age: 65 Year
  Weight: 70 kg

DRUGS (6)
  1. LYNPARZA [Suspect]
     Active Substance: OLAPARIB
     Indication: Ovarian cancer
     Dosage: 150 MILLIGRAM,2X2
  2. LYNPARZA [Suspect]
     Active Substance: OLAPARIB
  3. OKSAPAR [Concomitant]
     Dosage: 0.6 UNK, BID
  4. IRDA [Concomitant]
     Indication: Hypertension
  5. METFORMIN HYDROCHLORIDE [Concomitant]
     Active Substance: METFORMIN HYDROCHLORIDE
     Indication: Diabetes mellitus
     Dosage: 1000 MILLIGRAM, BID
  6. QUANTAVIR [Concomitant]
     Indication: Antiviral treatment

REACTIONS (2)
  - Acute myeloid leukaemia [Unknown]
  - Pancytopenia [Unknown]
